FAERS Safety Report 7453231-0 (Version None)
Quarter: 2011Q2

REPORT INFORMATION
  Report Type: 
  Country: None (occurrence: None)
  Receive Date: 20110502
  Receipt Date: 20101130
  Transmission Date: 20111010
  Serious: No
  Sender: FDA-Public Use
  Company Number: US-ASTRAZENECA-2010SE56764

PATIENT
  Sex: Female

DRUGS (10)
  1. PLAVIX [Concomitant]
  2. SIMVASTATIN [Concomitant]
     Indication: HYPERCHOLESTEROLAEMIA
  3. AMLODIPINE [Concomitant]
     Indication: HYPERTENSION
  4. TRIAMTERENE [Concomitant]
  5. GABAPENTIN [Concomitant]
     Indication: NERVOUSNESS
  6. NEXIUM [Suspect]
     Indication: GASTROOESOPHAGEAL REFLUX DISEASE
     Route: 048
     Dates: start: 20080101, end: 20090901
  7. ALPRAZOLAM [Concomitant]
     Indication: ANXIETY
  8. ISOSORBIDE DINITRATE [Concomitant]
  9. NEXIUM [Suspect]
     Route: 048
  10. HYDROMORPHONE [Concomitant]
     Indication: PAIN

REACTIONS (4)
  - GASTROOESOPHAGEAL REFLUX DISEASE [None]
  - OEDEMA PERIPHERAL [None]
  - ANXIETY [None]
  - DRUG DOSE OMISSION [None]
